FAERS Safety Report 13264285 (Version 1)
Quarter: 2017Q1

REPORT INFORMATION
  Report Type: Spontaneous
  Country: US (occurrence: US)
  Receive Date: 20170223
  Receipt Date: 20170223
  Transmission Date: 20170428
  Serious: No
  Sender: FDA-Public Use
  Company Number: None

PATIENT
  Age: 78 Year
  Sex: Female
  Weight: 61.69 kg

DRUGS (13)
  1. AMIODARONE [Suspect]
     Active Substance: AMIODARONE
     Indication: VENTRICULAR FIBRILLATION
     Route: 048
     Dates: start: 201609, end: 20170113
  2. SYNTHROID [Concomitant]
     Active Substance: LEVOTHYROXINE SODIUM
  3. COREG [Concomitant]
     Active Substance: CARVEDILOL
  4. VITAMIN C [Concomitant]
     Active Substance: ASCORBIC ACID
  5. DIGOXIN. [Concomitant]
     Active Substance: DIGOXIN
  6. WARFARIN [Concomitant]
     Active Substance: WARFARIN
  7. LASIX [Concomitant]
     Active Substance: FUROSEMIDE
  8. TRANDOLAPRIL. [Concomitant]
     Active Substance: TRANDOLAPRIL
  9. VITAMIN D3 [Concomitant]
     Active Substance: CHOLECALCIFEROL
  10. FISH OIL [Concomitant]
     Active Substance: FISH OIL
  11. POTASSIUM [Concomitant]
     Active Substance: POTASSIUM
  12. MAGNESIUM [Concomitant]
     Active Substance: MAGNESIUM
  13. ICD [Concomitant]

REACTIONS (13)
  - Syncope [None]
  - Asthenia [None]
  - Dizziness [None]
  - Insomnia [None]
  - Depression [None]
  - Tremor [None]
  - Thyroid disorder [None]
  - Panic attack [None]
  - Nasopharyngitis [None]
  - Feeling abnormal [None]
  - Gait disturbance [None]
  - Haemoptysis [None]
  - Cough [None]

NARRATIVE: CASE EVENT DATE: 20161101
